FAERS Safety Report 14926243 (Version 1)
Quarter: 2018Q2

REPORT INFORMATION
  Report Type: Spontaneous
  Country: US (occurrence: US)
  Receive Date: 20180523
  Receipt Date: 20180523
  Transmission Date: 20180711
  Serious: Yes (Other)
  Sender: FDA-Public Use
  Company Number: US-SHILPA MEDICARE LIMITED-SML-US-2018-00029

PATIENT
  Age: 13 Year
  Sex: Female

DRUGS (3)
  1. SORAFENIB [Suspect]
     Active Substance: SORAFENIB
     Indication: HEPATOCELLULAR CARCINOMA
     Dosage: ORAL SORAFENIB 400 MG/M2/DAY TWICE A DAY ON DAYS 1 TO 28 FOR 24 CYCLES
     Route: 048
  2. CAPECITABINE, UNKNOWN [Suspect]
     Active Substance: CAPECITABINE
     Dosage: IN THE FOLLOWING CYCLES, THE DOSE OF CAPECITABINE WAS DECREASED FROM DAYS 1 TO 7.
     Route: 048
  3. CAPECITABINE, UNKNOWN [Suspect]
     Active Substance: CAPECITABINE
     Indication: OFF LABEL USE
     Dosage: CAPECITABINE 1300 MG/M2/DAY TWO TIMES A DAY ON DAYS 1 TO 7 AND DAYS 14 TO 21.
     Route: 048

REACTIONS (3)
  - Off label use [Unknown]
  - Dry skin [Recovered/Resolved]
  - Palmar-plantar erythrodysaesthesia syndrome [Recovered/Resolved]
